FAERS Safety Report 7270225-9 (Version None)
Quarter: 2011Q1

REPORT INFORMATION
  Report Type: 
  Country: None (occurrence: None)
  Receive Date: 20110202
  Receipt Date: 20110128
  Transmission Date: 20110831
  Serious: Yes (Other)
  Sender: FDA-Public Use
  Company Number: FR-US-EMD SERONO, INC.-7019477

PATIENT
  Sex: Female

DRUGS (2)
  1. GONAL-F [Suspect]
     Indication: INFERTILITY FEMALE
     Route: 058
     Dates: start: 20100701, end: 20100701
  2. OVITRELLE [Suspect]
     Indication: INFERTILITY FEMALE
     Route: 058
     Dates: start: 20100701, end: 20100701

REACTIONS (1)
  - DEMYELINATION [None]
